FAERS Safety Report 19083955 (Version 1)
Quarter: 2021Q2

REPORT INFORMATION
  Report Type: Spontaneous
  Country: US (occurrence: US)
  Receive Date: 20210401
  Receipt Date: 20210401
  Transmission Date: 20210717
  Serious: Yes (Hospitalization, Other)
  Sender: FDA-Public Use
  Company Number: US-FRESENIUS KABI-FK202103083

PATIENT
  Age: 73 Year
  Sex: Female
  Weight: 77.2 kg

DRUGS (4)
  1. FOLINIC ACID [Suspect]
     Active Substance: LEUCOVORIN
     Indication: BILE DUCT CANCER
     Dosage: Q2W?STATUS: CONTINUING
     Route: 042
     Dates: start: 20210127
  2. NIVOLUMAB [Suspect]
     Active Substance: NIVOLUMAB
     Indication: BILE DUCT CANCER
     Dosage: Q2W?STATUS: CONTINUING
     Route: 042
     Dates: start: 20210201
  3. FLUOROURACIL (MANUFACTURER UNKNOWN) [Suspect]
     Active Substance: FLUOROURACIL
     Indication: BILE DUCT CANCER
     Dosage: Q2W?STATUS: CONTINUING
     Route: 042
     Dates: start: 20210201
  4. IRINOTECAN [Suspect]
     Active Substance: IRINOTECAN
     Indication: BILE DUCT CANCER
     Dosage: NANOLIPOSOMAL IRINOTECAN ?Q2W?STATUS: CONTINUING
     Route: 042
     Dates: start: 20210127

REACTIONS (2)
  - Upper gastrointestinal haemorrhage [Not Recovered/Not Resolved]
  - Duodenal ulcer [Not Recovered/Not Resolved]

NARRATIVE: CASE EVENT DATE: 20210310
